FAERS Safety Report 5835678-9 (Version None)
Quarter: 2008Q3

REPORT INFORMATION
  Report Type: 
  Country: None (occurrence: None)
  Receive Date: 20080722
  Receipt Date: 20080326
  Transmission Date: 20090109
  Serious: Yes (Hospitalization)
  Sender: FDA-Public Use
  Company Number: 2008BI008203

PATIENT
  Age: 56 Year
  Sex: Female

DRUGS (2)
  1. AVONEX [Suspect]
     Indication: MULTIPLE SCLEROSIS
     Dosage: 30 UG;QW;IM : 30 UG;QW;IM
     Route: 030
     Dates: start: 20020909, end: 20030101
  2. AVONEX [Suspect]
     Indication: MULTIPLE SCLEROSIS
     Dosage: 30 UG;QW;IM : 30 UG;QW;IM
     Route: 030
     Dates: start: 20030101

REACTIONS (2)
  - CONVULSION [None]
  - MEMORY IMPAIRMENT [None]
